FAERS Safety Report 8943118 (Version 1)
Quarter: 2012Q4

REPORT INFORMATION
  Report Type: 
  Country: PL (occurrence: PL)
  Receive Date: 20121204
  Receipt Date: 20121204
  Transmission Date: 20130627
  Serious: Yes (Other)
  Sender: FDA-Public Use
  Company Number: PHHY2012PL110930

PATIENT
  Age: 48 Year
  Sex: Male

DRUGS (3)
  1. CICLOSPORIN [Suspect]
  2. EVEROLIMUS [Suspect]
  3. PLAVIX [Suspect]

REACTIONS (5)
  - Post thrombotic syndrome [Unknown]
  - Ecchymosis [Unknown]
  - Skin hypertrophy [Unknown]
  - Skin discolouration [Unknown]
  - Scar [Unknown]
